FAERS Safety Report 19404835 (Version 1)
Quarter: 2021Q2

REPORT INFORMATION
  Report Type: Spontaneous
  Country: US (occurrence: US)
  Receive Date: 20210611
  Receipt Date: 20210611
  Transmission Date: 20210717
  Serious: Yes (Hospitalization)
  Sender: FDA-Public Use
  Company Number: US-STRIDES ARCOLAB LIMITED-2021SP003522

PATIENT
  Age: 79 Year
  Sex: Male

DRUGS (1)
  1. PREDNISOLONE. [Suspect]
     Active Substance: PREDNISOLONE
     Indication: AUTOIMMUNE PANCYTOPENIA
     Dosage: 80 MILLIGRAM PER DAY
     Route: 048

REACTIONS (2)
  - Systemic candida [Recovered/Resolved]
  - Candida endophthalmitis [Recovered/Resolved]
